FAERS Safety Report 5178235-2 (Version None)
Quarter: 2006Q4

REPORT INFORMATION
  Report Type: 
  Country: None (occurrence: None)
  Receive Date: 20061208
  Receipt Date: 20061130
  Transmission Date: 20070319
  Serious: Yes (Hospitalization)
  Sender: FDA-Public Use
  Company Number: GXKR2006LT07848

PATIENT
  Age: 16 Year
  Sex: Male
  Weight: 46 kg

DRUGS (2)
  1. PARACETAMOL (NGX)(PARACETAMOL) UNKNOWN [Suspect]
     Indication: PYREXIA
     Dosage: UNK, UNK, ORAL
     Route: 048
     Dates: start: 20061026, end: 20061029
  2. OSPAMOX (NGX)(AMOXICILLIN TRIHYDRATE) UNKNOWN [Suspect]
     Indication: PYREXIA
     Dosage: UNK, UNK, ORAL
     Route: 048
     Dates: start: 20061026, end: 20061029

REACTIONS (5)
  - DERMATITIS BULLOUS [None]
  - MUCOUS MEMBRANE DISORDER [None]
  - NECROSIS [None]
  - SKIN ULCER [None]
  - STEVENS-JOHNSON SYNDROME [None]
